FAERS Safety Report 8305582-5 (Version None)
Quarter: 2012Q2

REPORT INFORMATION
  Report Type: 
  Country: None (occurrence: None)
  Receive Date: 20120423
  Receipt Date: 20120413
  Transmission Date: 20120825
  Serious: Yes (Other)
  Sender: FDA-Public Use
  Company Number: US-ASTRAZENECA-2012SE15691

PATIENT
  Age: 36 Year
  Sex: Female
  Weight: 72.6 kg

DRUGS (6)
  1. XANAX [Concomitant]
     Indication: ANXIETY
  2. SEROQUEL [Suspect]
     Indication: BIPOLAR I DISORDER
     Dosage: 600 MG IN MORNING, 600 MG IN EARLY AFTERNOON, 600 MG IN THE EVENING AND 1200 MG AT BEDTIME
     Route: 048
  3. TOPAMAX [Concomitant]
     Indication: CONVULSION
  4. ZOLOFT [Concomitant]
     Indication: DEPRESSION
  5. LEVOTHYROXINE SODIUM [Concomitant]
     Indication: HYPOTHYROIDISM
  6. OTC ACID CONTROLLER [Concomitant]

REACTIONS (8)
  - CONVULSION [None]
  - WEIGHT INCREASED [None]
  - THERAPEUTIC RESPONSE UNEXPECTED [None]
  - INTENTIONAL DRUG MISUSE [None]
  - HUNGER [None]
  - OFF LABEL USE [None]
  - FATIGUE [None]
  - FEELING ABNORMAL [None]
